FAERS Safety Report 5008587-5 (Version None)
Quarter: 2006Q2

REPORT INFORMATION
  Report Type: 
  Country: None (occurrence: None)
  Receive Date: 20060523
  Receipt Date: 20060119
  Transmission Date: 20061013
  Serious: Yes (Other)
  Sender: FDA-Public Use
  Company Number: HU-ROCHE-432936

PATIENT
  Age: 66 Year
  Sex: Female
  Weight: 95.5 kg

DRUGS (16)
  1. XENICAL [Suspect]
     Indication: OBESITY
     Route: 048
     Dates: start: 20051101, end: 20051115
  2. XENICAL [Suspect]
     Route: 048
     Dates: start: 20051116, end: 20060114
  3. COVEREX [Concomitant]
  4. AMILORID [Concomitant]
  5. NITRODERM [Concomitant]
     Dosage: DRUG REPORTED AS NITRODERM TTS-5
  6. ADEXOR [Concomitant]
     Route: 048
  7. ALGOPYRINE [Concomitant]
     Dosage: DOSAGE REGIMEN REPORTED AS 'IN NEED'
     Route: 048
  8. BETASERC [Concomitant]
     Route: 048
  9. CONCOR [Concomitant]
     Route: 048
  10. ERGOTOP [Concomitant]
  11. FLECTOR [Concomitant]
  12. NO-SPA [Concomitant]
     Dosage: DOSAGE REGIMEN: IN NEED
  13. NORMODIPINE [Concomitant]
  14. QUAMATEL [Concomitant]
  15. RIVOTRIL [Concomitant]
     Dates: start: 19800615
  16. TEGRETOL [Concomitant]

REACTIONS (10)
  - ABDOMINAL PAIN [None]
  - BLOOD BILIRUBIN INCREASED [None]
  - BLOOD GLUCOSE INCREASED [None]
  - CONJUNCTIVITIS [None]
  - DIARRHOEA [None]
  - FOOT FRACTURE [None]
  - HEPATIC STEATOSIS [None]
  - HERPES ZOSTER [None]
  - NEPHROLITHIASIS [None]
  - PURPURA [None]
